FAERS Safety Report 25245005 (Version 2)
Quarter: 2025Q2

REPORT INFORMATION
  Report Type: Spontaneous
  Country: US (occurrence: US)
  Receive Date: 20250428
  Receipt Date: 20250528
  Transmission Date: 20250716
  Serious: Yes (Death, Hospitalization)
  Sender: DOMPE FARMACEUTICI
  Company Number: US-FARMAPROD-202504-1189

PATIENT
  Age: 87 Year
  Sex: Male
  Weight: 80.6 kg

DRUGS (9)
  1. OXERVATE [Suspect]
     Active Substance: CENEGERMIN-BKBJ
     Indication: Neurotrophic keratopathy
     Route: 047
     Dates: start: 20221110, end: 20230112
  2. OXERVATE [Suspect]
     Active Substance: CENEGERMIN-BKBJ
     Route: 047
     Dates: start: 20250407
  3. OXERVATE [Suspect]
     Active Substance: CENEGERMIN-BKBJ
     Route: 047
     Dates: start: 20230301, end: 20230426
  4. NEBULIZER EACH [Concomitant]
  5. LEVETIRACETAM [Concomitant]
     Active Substance: LEVETIRACETAM
  6. ALBUTEROL SULFATE [Concomitant]
     Active Substance: ALBUTEROL SULFATE
  7. BREZTRI [Concomitant]
     Active Substance: BUDESONIDE\FORMOTEROL\GLYCOPYRROLATE
  8. FLUTICASONE PROPIONATE [Concomitant]
     Active Substance: FLUTICASONE PROPIONATE
  9. DUTASTERIDE [Concomitant]
     Active Substance: DUTASTERIDE

REACTIONS (3)
  - Death [Fatal]
  - Hospitalisation [Unknown]
  - Eye pain [Unknown]

NARRATIVE: CASE EVENT DATE: 20250407
